FAERS Safety Report 9624723 (Version 1)
Quarter: 2013Q4

REPORT INFORMATION
  Report Type: Spontaneous
  Country: FI (occurrence: None)
  Receive Date: 20131010
  Receipt Date: 20131010
  Transmission Date: 20140711
  Serious: Yes (Death)
  Sender: FDA-Public Use
  Company Number: 1941857

PATIENT
  Age: 68 Year
  Sex: Female

DRUGS (3)
  1. DOCETAXEL [Suspect]
     Indication: BREAST CANCER
     Route: 042
     Dates: start: 20130404, end: 20130516
  2. TRASTUZUMAB [Suspect]
     Indication: BREAST CANCER
     Route: 042
     Dates: start: 20130404
  3. LISINOPRIL DIHYDRATE [Concomitant]

REACTIONS (4)
  - Pulmonary fibrosis [None]
  - Pneumocystis jirovecii infection [None]
  - Pneumonia [None]
  - Neutropenic infection [None]
